FAERS Safety Report 15191130 (Version 3)
Quarter: 2018Q3

REPORT INFORMATION
  Report Type: Report from Study
  Country: JP (occurrence: JP)
  Receive Date: 20180724
  Receipt Date: 20180818
  Transmission Date: 20181010
  Serious: Yes (Hospitalization)
  Sender: FDA-Public Use
  Company Number: JP-UCBSA-2018018016

PATIENT
  Age: 6 Month
  Sex: Male
  Weight: 7 kg

DRUGS (12)
  1. PHENOBAL [Concomitant]
     Active Substance: PHENOBARBITAL
     Dosage: 15MG PER DAY
     Dates: start: 20180605, end: 201807
  2. PHENOBAL [Concomitant]
     Active Substance: PHENOBARBITAL
     Dosage: 30 MG DAILY
     Dates: start: 20180427, end: 201805
  3. LEVETIRACETAM. [Suspect]
     Active Substance: LEVETIRACETAM
     Indication: PARTIAL SEIZURES
     Dosage: 14 MG/KG/DAY
     Route: 048
     Dates: start: 20180131, end: 201802
  4. LEVETIRACETAM. [Suspect]
     Active Substance: LEVETIRACETAM
     Dosage: 30 MG/KG, 2X/DAY (BID)
     Route: 048
     Dates: start: 20180417, end: 20180420
  5. PHENOBAL [Concomitant]
     Active Substance: PHENOBARBITAL
     Dosage: 4 MG, 2X/DAY (BID)
     Dates: start: 20180703
  6. VITAMIN B6 [Concomitant]
     Active Substance: PYRIDOXINE HYDROCHLORIDE
     Indication: EPILEPSY
     Dosage: 250 MG, 3X/DAY (TID)
     Route: 048
     Dates: start: 20180109
  7. LEVETIRACETAM. [Suspect]
     Active Substance: LEVETIRACETAM
     Dosage: 20 MG/KG, 2X/DAY (BID)
     Route: 048
     Dates: start: 20180421
  8. PHENOBAL [Concomitant]
     Active Substance: PHENOBARBITAL
     Indication: EPILEPSY
     Dosage: 20 MG, 2X/DAY (BID)
     Route: 048
     Dates: start: 20171226
  9. PHENOBAL [Concomitant]
     Active Substance: PHENOBARBITAL
     Dosage: 25MG A DAY
     Dates: start: 20180516, end: 201806
  10. LEVETIRACETAM. [Suspect]
     Active Substance: LEVETIRACETAM
     Dosage: 28 MG/KG/DAY
     Route: 048
     Dates: start: 201802, end: 2018
  11. LEVETIRACETAM. [Suspect]
     Active Substance: LEVETIRACETAM
     Dosage: 42 MG/KG/DAY
     Route: 048
     Dates: start: 201803, end: 2018
  12. ALCLOMETASONE DIPROPIONATE. [Concomitant]
     Active Substance: ALCLOMETASONE DIPROPIONATE
     Indication: ECZEMA
     Dosage: QS, 2X/DAY (BID)
     Route: 003
     Dates: start: 20180301

REACTIONS (2)
  - Somnolence [Recovering/Resolving]
  - Seizure cluster [Recovered/Resolved]

NARRATIVE: CASE EVENT DATE: 20180420
